APPROVED DRUG PRODUCT: TEMAZEPAM
Active Ingredient: TEMAZEPAM
Strength: 22.5MG
Dosage Form/Route: CAPSULE;ORAL
Application: A070920 | Product #003
Applicant: AUROBINDO PHARMA USA INC
Approved: Jun 12, 2009 | RLD: No | RS: No | Type: DISCN